FAERS Safety Report 9031715 (Version 1)
Quarter: 2013Q1

REPORT INFORMATION
  Report Type: Spontaneous
  Country: US (occurrence: US)
  Receive Date: 20130124
  Receipt Date: 20130124
  Transmission Date: 20140127
  Serious: Yes (Other)
  Sender: FDA-Public Use
  Company Number: US-PFIZER INC-2013028441

PATIENT
  Age: 68 Year
  Sex: Female

DRUGS (2)
  1. METHOTREXATE SODIUM [Suspect]
     Indication: CENTRAL NERVOUS SYSTEM LYMPHOMA
     Dosage: HIGH DOSE, 5 CYCLICS
     Route: 042
  2. METHOTREXATE SODIUM [Suspect]
     Dosage: TWO COURSES
     Route: 042

REACTIONS (2)
  - Lymphoma [Recovering/Resolving]
  - Vitritis [Unknown]
